FAERS Safety Report 15352087 (Version 1)
Quarter: 2018Q3

REPORT INFORMATION
  Report Type: Spontaneous
  Country: PL (occurrence: PL)
  Receive Date: 20180905
  Receipt Date: 20180905
  Transmission Date: 20181010
  Serious: Yes (Other)
  Sender: FDA-Public Use
  Company Number: PL-BAYER-2018-164739

PATIENT
  Age: 52 Year
  Sex: Female

DRUGS (1)
  1. BETAFERON [Suspect]
     Active Substance: INTERFERON BETA-1B
     Indication: MULTIPLE SCLEROSIS
     Dosage: UNK
     Dates: start: 201012

REACTIONS (5)
  - Multiple sclerosis relapse [None]
  - Back pain [None]
  - Anal sphincter atony [None]
  - Neuralgia [None]
  - Influenza like illness [None]

NARRATIVE: CASE EVENT DATE: 2011
